FAERS Safety Report 8100062-4 (Version None)
Quarter: 2012Q1

REPORT INFORMATION
  Report Type: 
  Country: None (occurrence: None)
  Receive Date: 20120129
  Receipt Date: 20111103
  Transmission Date: 20120608
  Serious: No
  Sender: FDA-Public Use
  Company Number: US-ABBOTT-11P-163-0870954-00

PATIENT
  Sex: Male
  Weight: 90.8 kg

DRUGS (7)
  1. AGICOR [Concomitant]
     Indication: ADRENAL DISORDER
  2. HUMIRA [Suspect]
     Dates: start: 20110101
  3. AMITRIPTYLINE HCL [Concomitant]
     Indication: SLEEP DISORDER THERAPY
  4. TRAVACOR [Concomitant]
     Indication: ADRENAL DISORDER
  5. HUMIRA [Suspect]
     Indication: ANKYLOSING SPONDYLITIS
     Dates: start: 20100101, end: 20110101
  6. VITAMIN B COMPLEX CAP [Concomitant]
     Indication: VITAMIN SUPPLEMENTATION
  7. PREDNISONE TAB [Concomitant]
     Indication: BLOOD CORTISOL DECREASED

REACTIONS (4)
  - RHINORRHOEA [None]
  - STAPHYLOCOCCAL INFECTION [None]
  - BACK PAIN [None]
  - MALAISE [None]
